FAERS Safety Report 7935936-8 (Version None)
Quarter: 2012Q1

REPORT INFORMATION
  Report Type: 
  Country: None (occurrence: None)
  Receive Date: 20111121
  Receipt Date: 20111107
  Transmission Date: 20120608
  Serious: Yes (Hospitalization, Other)
  Sender: FDA-Public Use
  Company Number: DSJ-2011-22126

PATIENT
  Age: 4 Decade
  Sex: Female

DRUGS (6)
  1. ANESTHESIA [Suspect]
     Indication: PREOPERATIVE CARE
     Dates: start: 20090101, end: 20090101
  2. AMLODIPINE BESYLATE AND OLMESARTAN MEDOXOMIL [Suspect]
     Indication: HYPERTENSION
     Dosage: SEE IMAGE
     Route: 048
     Dates: start: 20111107
  3. AMLODIPINE BESYLATE AND OLMESARTAN MEDOXOMIL [Suspect]
     Indication: HYPERTENSION
     Dosage: SEE IMAGE
     Route: 048
     Dates: start: 20090701, end: 20110901
  4. AMLODIPINE BESYLATE AND OLMESARTAN MEDOXOMIL [Suspect]
     Indication: HYPERTENSION
     Dosage: SEE IMAGE
     Route: 048
     Dates: start: 20090101, end: 20090701
  5. AMLODIPINE BESYLATE AND OLMESARTAN MEDOXOMIL [Suspect]
     Indication: HYPERTENSION
     Dosage: SEE IMAGE
     Route: 048
     Dates: start: 20110901, end: 20110101
  6. LEVOTHROXINE SODIUM (LEVOTHYROXINE SODIUM (LEVOTHROXINE SODIUM) [Concomitant]

REACTIONS (12)
  - DRY MOUTH [None]
  - COMA [None]
  - DIZZINESS [None]
  - DRUG ADMINISTRATION ERROR [None]
  - BLOOD PRESSURE SYSTOLIC INCREASED [None]
  - OEDEMA PERIPHERAL [None]
  - HEADACHE [None]
  - DRUG INEFFECTIVE [None]
  - HYPERAEMIA [None]
  - HYPOTENSION [None]
  - CARDIO-RESPIRATORY ARREST [None]
  - PARAESTHESIA [None]
